FAERS Safety Report 4593840-X (Version None)
Quarter: 2005Q1

REPORT INFORMATION
  Report Type: 
  Country: None (occurrence: None)
  Receive Date: 20050301
  Receipt Date: 20050221
  Transmission Date: 20050727
  Serious: Yes (Other)
  Sender: FDA-Public Use
  Company Number: PHBS2005IL02566

PATIENT
  Age: 50 Year
  Sex: Male

DRUGS (1)
  1. GLEEVEC [Suspect]
     Indication: CHRONIC MYELOID LEUKAEMIA
     Dosage: 400 MG/DAY
     Route: 048
     Dates: start: 20030101

REACTIONS (7)
  - ANAL FISSURE [None]
  - ANORECTAL OPERATION [None]
  - ARTHRALGIA [None]
  - CONJUNCTIVITIS [None]
  - GENERALISED ERYTHEMA [None]
  - HAEMORRHOIDS [None]
  - POST PROCEDURAL COMPLICATION [None]
